FAERS Safety Report 4790271-4 (Version None)
Quarter: 2005Q4

REPORT INFORMATION
  Report Type: 
  Country: None (occurrence: None)
  Receive Date: 20051005
  Receipt Date: 20051005
  Transmission Date: 20060501
  Serious: Yes (Life-Threatening, Hospitalization)
  Sender: FDA-Public Use
  Company Number: None

PATIENT
  Sex: Male

DRUGS (12)
  1. WARFARIN [Suspect]
     Indication: THROMBOSIS PROPHYLAXIS
     Dosage: 5 MG PO MWF 2.5MG OTHER DAYS
     Route: 048
     Dates: start: 20040526, end: 20040802
  2. K-DUR 10 [Concomitant]
  3. CLOPIDOGREL [Concomitant]
  4. FAMOTIDINE [Concomitant]
  5. ISOSORBIDE [Concomitant]
  6. ZOCOR [Concomitant]
  7. ALTACE [Concomitant]
  8. METOPROLOL [Concomitant]
  9. PROSCAR [Concomitant]
  10. FLOMAX [Concomitant]
  11. FUROSEMIDE [Concomitant]
  12. ASPIRIN [Concomitant]

REACTIONS (4)
  - CONFUSIONAL STATE [None]
  - GRAND MAL CONVULSION [None]
  - HEMIPLEGIA [None]
  - HYPERTENSION [None]
